FAERS Safety Report 12060806 (Version 1)
Quarter: 2016Q1

REPORT INFORMATION
  Report Type: Spontaneous
  Country: US (occurrence: US)
  Receive Date: 20160210
  Receipt Date: 20160210
  Transmission Date: 20160526
  Serious: No
  Sender: FDA-Public Use
  Company Number: US-TEVA-632319USA

PATIENT
  Age: 49 Year
  Sex: Female

DRUGS (1)
  1. COPAXONE [Suspect]
     Active Substance: GLATIRAMER ACETATE
     Route: 058
     Dates: start: 20150128

REACTIONS (4)
  - Hypoaesthesia [Unknown]
  - Pain in extremity [Unknown]
  - Injection site reaction [Unknown]
  - Limb discomfort [Unknown]

NARRATIVE: CASE EVENT DATE: 201601
